FAERS Safety Report 10147442 (Version 1)
Quarter: 2014Q2

REPORT INFORMATION
  Report Type: Spontaneous
  Country: JP (occurrence: JP)
  Receive Date: 20140501
  Receipt Date: 20140501
  Transmission Date: 20141212
  Serious: Yes (Other)
  Sender: FDA-Public Use
  Company Number: PHHY2014JP050479

PATIENT
  Age: 59 Year
  Sex: Female

DRUGS (4)
  1. PACLITAXEL [Suspect]
     Indication: BREAST CANCER
     Dosage: 80 MG/M2, QW
     Route: 042
  2. 5-FLUOROURACIL [Suspect]
     Indication: BREAST CANCER
     Dosage: 500 MG/M2, UNK
     Route: 042
  3. EPIRUBICIN [Suspect]
     Indication: BREAST CANCER
     Dosage: 100 MG/M2, UNK
     Route: 042
  4. CYCLOPHOSPHAMID [Suspect]
     Indication: BREAST CANCER
     Dosage: 500 MG/M2, UNK
     Route: 042

REACTIONS (4)
  - Interstitial lung disease [Recovered/Resolved]
  - Fatigue [Recovered/Resolved]
  - Pyrexia [Recovered/Resolved]
  - Drug effect incomplete [Unknown]
